FAERS Safety Report 7653891-5 (Version None)
Quarter: 2011Q3

REPORT INFORMATION
  Report Type: 
  Country: None (occurrence: None)
  Receive Date: 20110727
  Receipt Date: 20110117
  Transmission Date: 20111222
  Serious: Yes (Other)
  Sender: FDA-Public Use
  Company Number: OMPQ-PR-1101S-0039

PATIENT
  Age: 50 Year
  Sex: Female
  Weight: 72.5755 kg

DRUGS (1)
  1. OMNIPAQUE 70 [Suspect]
     Indication: ABDOMINAL PAIN
     Dosage: 100 ML, SINGLE DOSE, INTRAVENOUS
     Route: 042
     Dates: start: 20110117, end: 20110117

REACTIONS (4)
  - ORAL PRURITUS [None]
  - CHEST PAIN [None]
  - ANAPHYLACTOID REACTION [None]
  - DYSPNOEA [None]
